FAERS Safety Report 6200584-7 (Version None)
Quarter: 2009Q2

REPORT INFORMATION
  Report Type: 
  Country: None (occurrence: None)
  Receive Date: 20090522
  Receipt Date: 20090512
  Transmission Date: 20091009
  Serious: Yes (Other)
  Sender: FDA-Public Use
  Company Number: FR-AMGEN-US348171

PATIENT
  Age: 45 Year
  Sex: Male

DRUGS (3)
  1. ENBREL [Suspect]
     Indication: PSORIATIC ARTHROPATHY
     Route: 058
  2. INFLIXIMAB [Suspect]
     Indication: PSORIATIC ARTHROPATHY
     Dosage: 5 MG/KG EVERY 1 CYC
     Route: 042
  3. INFLIXIMAB [Suspect]
     Dosage: 5 MG/KG EVERY 1 CYC
     Route: 042

REACTIONS (3)
  - DRUG EFFECT DECREASED [None]
  - HYPOTHERMIA [None]
  - MULTIFOCAL MOTOR NEUROPATHY [None]
